FAERS Safety Report 8875694 (Version 1)
Quarter: 2012Q4

REPORT INFORMATION
  Report Type: 
  Country: ES (occurrence: ES)
  Receive Date: 20121030
  Receipt Date: 20121030
  Transmission Date: 20130627
  Serious: Yes (Hospitalization)
  Sender: FDA-Public Use
  Company Number: PHHY2012ES097533

PATIENT
  Age: 17 Year
  Sex: Male

DRUGS (8)
  1. MYFORTIC [Suspect]
     Dosage: 720 mg / 12 hours
     Dates: start: 201111
  2. OMEPRAZOLE [Suspect]
     Dates: end: 20120109
  3. ACOVIL [Concomitant]
     Dosage: 5 mg, UNK
  4. APROVEL [Concomitant]
     Dosage: 300 mg, UNK
  5. FERO-GRADUMET [Concomitant]
  6. OMEGA-3 ACID ETHYL ESTERS [Concomitant]
  7. PREVENCOR [Concomitant]
     Dosage: 40 mg, UNK
  8. PREDNISONE [Concomitant]
     Dosage: 10 mg, UNK

REACTIONS (2)
  - Hypoparathyroidism [Recovered/Resolved]
  - Hypomagnesaemia [Recovered/Resolved]
